FAERS Safety Report 6269774-1 (Version None)
Quarter: 2009Q3

REPORT INFORMATION
  Report Type: 
  Country: None (occurrence: None)
  Receive Date: 20090716
  Receipt Date: 20090710
  Transmission Date: 20100115
  Serious: Yes (Death, Hospitalization)
  Sender: FDA-Public Use
  Company Number: SE-ASTRAZENECA-2009SE04512

PATIENT
  Age: 20826 Day
  Sex: Male
  Weight: 36 kg

DRUGS (16)
  1. BUPIVACAINE [Suspect]
     Indication: LUNG NEOPLASM MALIGNANT
     Dosage: 0.8 MG/HOUR
     Route: 040
     Dates: start: 20090429
  2. BUPIVACAINE [Suspect]
     Dosage: 0.8 ML/HOUR
     Route: 042
     Dates: start: 20090429
  3. MORPHINE [Suspect]
     Indication: LUNG NEOPLASM MALIGNANT
     Dosage: 0.16 MG/HOUR
     Route: 040
     Dates: start: 20090429
  4. MORPHINE [Suspect]
     Dosage: 0.8 ML/HOUR
     Route: 042
     Dates: start: 20090429
  5. METOCLOPRAMIDE [Concomitant]
     Indication: VOMITING
     Route: 048
     Dates: start: 20090101
  6. BETAMETASONE [Concomitant]
     Indication: VOMITING
     Route: 048
     Dates: start: 20090101
  7. OMEPRAZOLE [Concomitant]
     Indication: GASTRITIS
     Route: 048
     Dates: start: 20090101
  8. MACROGOL [Concomitant]
     Indication: CONSTIPATION
     Route: 048
     Dates: start: 20090101
  9. POTASSIUM CHLORIDE [Concomitant]
     Indication: HYPOKALAEMIA
     Route: 048
     Dates: start: 20080101
  10. PROPIOMAZIN [Concomitant]
     Indication: INSOMNIA
     Route: 048
     Dates: start: 20090101
  11. NYSTATIN [Concomitant]
     Indication: FUNGUS CSF TEST
     Route: 048
     Dates: start: 20090101
  12. SODIUM PICOSULFATE 7.5 MG/ML [Concomitant]
     Indication: CONSTIPATION
     Route: 048
     Dates: start: 20090101
  13. MIDAZOLAM HCL [Concomitant]
     Indication: ANXIETY
     Dosage: MG/DAY
     Route: 042
     Dates: start: 20090524
  14. HYDROMORPHONE HCL [Concomitant]
     Indication: PAIN
     Dosage: MG/DAY
     Route: 042
     Dates: start: 20090101, end: 20090522
  15. PARACETAMOL [Concomitant]
     Indication: PAIN
     Route: 048
     Dates: start: 20090101
  16. OXYCODONE [Concomitant]
     Indication: PAIN
     Route: 048
     Dates: start: 20080101

REACTIONS (2)
  - FALL [None]
  - MALIGNANT NEOPLASM PROGRESSION [None]
